FAERS Safety Report 9177117 (Version 1)
Quarter: 2013Q1

REPORT INFORMATION
  Report Type: Spontaneous
  Country: IN (occurrence: None)
  Receive Date: 20130319
  Receipt Date: 20130319
  Transmission Date: 20140127
  Serious: Yes (Hospitalization)
  Sender: FDA-Public Use
  Company Number: FK201300814

PATIENT
  Age: 30 Year
  Sex: Male

DRUGS (2)
  1. METHOTREXATE (MANUFACTURER UNKNOWN) (METHOTREXATE) (METHOTREXATE) [Suspect]
     Indication: RHEUMATOID ARTHRITIS
     Route: 058
  2. FOLIC ACID (FOLIC ACID) [Concomitant]

REACTIONS (6)
  - Benign intracranial hypertension [None]
  - Psychotic disorder [None]
  - Hallucination, auditory [None]
  - Hallucination, visual [None]
  - Speech disorder [None]
  - Sleep disorder [None]
